FAERS Safety Report 19809884 (Version 1)
Quarter: 2021Q3

REPORT INFORMATION
  Report Type: Spontaneous
  Country: US (occurrence: US)
  Receive Date: 20210908
  Receipt Date: 20210908
  Transmission Date: 20211014
  Serious: No
  Sender: FDA-Public Use
  Company Number: US-SA-2021SA294979

PATIENT
  Sex: Male
  Weight: 52.9 kg

DRUGS (1)
  1. DUPIXENT [Suspect]
     Active Substance: DUPILUMAB
     Dosage: 1 DF, QOW
     Route: 058

REACTIONS (5)
  - Erythema [Unknown]
  - Eczema [Unknown]
  - Insomnia [Unknown]
  - Skin fissures [Unknown]
  - Scratch [Unknown]
